FAERS Safety Report 4414527-X (Version None)
Quarter: 2004Q2

REPORT INFORMATION
  Report Type: 
  Country: None (occurrence: None)
  Receive Date: 20040621
  Receipt Date: 20031201
  Transmission Date: 20050107
  Serious: Yes (Death, Other)
  Sender: FDA-Public Use
  Company Number: USA-2003-0011901

PATIENT
  Age: 50 Year
  Sex: Male
  Weight: 138.3 kg

DRUGS (10)
  1. OXYCODONE HCL [Suspect]
     Dosage: MG
  2. HYDROCODONE BITARTRATE [Suspect]
     Dosage: MG
  3. ETHANOL (ETHANOL) [Suspect]
     Dosage: L
  4. ACETAMINOPHEN [Suspect]
  5. CAFFEINE (CAFFEINE) [Suspect]
     Dosage: MG
  6. CYCLOBENZAPRINE HCL [Suspect]
     Dosage: MG
  7. ZOLPIDEM (ZOLPIDEM) [Suspect]
     Dosage: MG
  8. PERCOCET [Concomitant]
  9. ALBUTEROL [Concomitant]
  10. ATENOLOL [Concomitant]

REACTIONS (3)
  - ACCIDENTAL OVERDOSE [None]
  - DRUG ABUSER [None]
  - MULTIPLE DRUG OVERDOSE [None]
